FAERS Safety Report 4308362-0 (Version None)
Quarter: 2004Q1

REPORT INFORMATION
  Report Type: 
  Country: None (occurrence: None)
  Receive Date: 20040301
  Receipt Date: 20040220
  Transmission Date: 20041129
  Serious: Yes (Hospitalization)
  Sender: FDA-Public Use
  Company Number: PHEH2004US02221

PATIENT
  Age: 65 Year
  Sex: Female

DRUGS (7)
  1. ZELNORM [Suspect]
     Indication: IRRITABLE BOWEL SYNDROME
     Dosage: 6 MG, QD
     Route: 048
  2. EVISTA [Concomitant]
  3. PREVACID [Concomitant]
  4. DIOVAN HCT [Concomitant]
     Dosage: 160/12.5MG
  5. METAMUCIL ^PROCTER + GAMBLE^ [Concomitant]
  6. VITAMIN C [Concomitant]
  7. STOOL SOFTENER [Concomitant]

REACTIONS (10)
  - ABDOMINAL PAIN [None]
  - BLOOD AMYLASE INCREASED [None]
  - BLOOD POTASSIUM DECREASED [None]
  - BLOOD SODIUM DECREASED [None]
  - COMPUTERISED TOMOGRAM ABNORMAL [None]
  - HEPATIC STEATOSIS [None]
  - LIPASE INCREASED [None]
  - NAUSEA [None]
  - PANCREATITIS ACUTE [None]
  - WHITE BLOOD CELL COUNT INCREASED [None]
